FAERS Safety Report 9461695 (Version 1)
Quarter: 2013Q3

REPORT INFORMATION
  Report Type: Spontaneous
  Country: BE (occurrence: BE)
  Receive Date: 20130816
  Receipt Date: 20130816
  Transmission Date: 20140515
  Serious: Yes (Other)
  Sender: FDA-Public Use
  Company Number: BE-JNJFOC-20130804057

PATIENT
  Sex: Female

DRUGS (3)
  1. XEPLION [Suspect]
     Indication: PRODUCT USED FOR UNKNOWN INDICATION
     Route: 030
  2. SEROQUEL [Concomitant]
     Route: 065
  3. MANIPREX [Concomitant]
     Route: 065

REACTIONS (5)
  - Nervous system disorder [Unknown]
  - Loss of control of legs [Unknown]
  - Accidental overdose [Unknown]
  - Asthenia [Unknown]
  - Inappropriate schedule of drug administration [Unknown]
